FAERS Safety Report 6894731-1 (Version None)
Quarter: 2010Q3

REPORT INFORMATION
  Report Type: 
  Country: None (occurrence: None)
  Receive Date: 20100802
  Receipt Date: 20100728
  Transmission Date: 20110219
  Serious: Yes (Life-Threatening, Other)
  Sender: FDA-Public Use
  Company Number: CN-ASTRAZENECA-2010SE35153

PATIENT
  Age: 63 Year
  Sex: Male

DRUGS (1)
  1. DIPRIVAN [Suspect]
     Indication: ENDOSCOPY UPPER GASTROINTESTINAL TRACT
     Dosage: 4 MG/S, WHEN 200 MG WAS GIVEN
     Route: 042

REACTIONS (2)
  - ATRIAL FIBRILLATION [None]
  - RESPIRATORY ARREST [None]
